FAERS Safety Report 13049896 (Version 2)
Quarter: 2017Q1

REPORT INFORMATION
  Report Type: Spontaneous
  Country: US (occurrence: US)
  Receive Date: 20161221
  Receipt Date: 20170103
  Transmission Date: 20170428
  Serious: Yes (Other)
  Sender: FDA-Public Use
  Company Number: US-ASTELLAS-2016US049488

PATIENT
  Sex: Male

DRUGS (1)
  1. XTANDI [Suspect]
     Active Substance: ENZALUTAMIDE
     Indication: PROSTATE CANCER
     Route: 048

REACTIONS (5)
  - Dizziness [Recovering/Resolving]
  - Weight decreased [Not Recovered/Not Resolved]
  - Pericarditis [Unknown]
  - Dysphagia [Not Recovered/Not Resolved]
  - Prostatic specific antigen increased [Unknown]
